FAERS Safety Report 6224278-7 (Version None)
Quarter: 2009Q2

REPORT INFORMATION
  Report Type: 
  Country: None (occurrence: None)
  Receive Date: 20090612
  Receipt Date: 20090316
  Transmission Date: 20091009
  Serious: Yes (Hospitalization)
  Sender: FDA-Public Use
  Company Number: US-ABBOTT-09P-163-0562631-00

PATIENT
  Sex: Female
  Weight: 47.67 kg

DRUGS (3)
  1. HUMIRA [Suspect]
     Indication: CROHN'S DISEASE
     Route: 058
     Dates: start: 20080701
  2. EFFEXOR [Concomitant]
     Indication: ANXIETY
     Route: 048
  3. EFFEXOR [Concomitant]
     Indication: DEPRESSION

REACTIONS (5)
  - CROHN'S DISEASE [None]
  - DRUG DELIVERY SYSTEM MALFUNCTION [None]
  - EYE INFECTION [None]
  - FUNGAL SKIN INFECTION [None]
  - NASOPHARYNGITIS [None]
